FAERS Safety Report 23056844 (Version 1)
Quarter: 2023Q4

REPORT INFORMATION
  Report Type: Spontaneous
  Country: DE (occurrence: DE)
  Receive Date: 20231012
  Receipt Date: 20231012
  Transmission Date: 20240110
  Serious: Yes (Other)
  Sender: FDA-Public Use
  Company Number: None

PATIENT
  Age: 64 Year
  Sex: Male
  Weight: 69 kg

DRUGS (2)
  1. RAMIPRIL [Suspect]
     Active Substance: RAMIPRIL
     Indication: Myocardial infarction
     Dosage: 1 DOSAGE FORMS DAILY; RAMIPRIL 2,5MG, 1 TABLET IN THE MORNING
     Dates: start: 20230529, end: 20230908
  2. RAMIPRIL [Suspect]
     Active Substance: RAMIPRIL
     Indication: Stent placement

REACTIONS (2)
  - Ventricular tachycardia [Recovering/Resolving]
  - Malaise [Recovering/Resolving]

NARRATIVE: CASE EVENT DATE: 20230807
